FAERS Safety Report 14668799 (Version 1)
Quarter: 2018Q1

REPORT INFORMATION
  Report Type: Spontaneous
  Country: CA (occurrence: CA)
  Receive Date: 20180322
  Receipt Date: 20180322
  Transmission Date: 20180509
  Serious: Yes (Other)
  Sender: FDA-Public Use
  Company Number: CA-BAYER-2018-051650

PATIENT
  Age: 23 Year
  Sex: Female
  Weight: 61.22 kg

DRUGS (2)
  1. MIRENA [Suspect]
     Active Substance: LEVONORGESTREL
     Indication: CONTRACEPTION
     Dosage: 20 MCG/24HR, CONT
     Route: 015
  2. MIRENA [Suspect]
     Active Substance: LEVONORGESTREL
     Indication: CONTRACEPTION

REACTIONS (9)
  - Mood swings [None]
  - Visual acuity reduced [None]
  - Negative thoughts [None]
  - Loss of libido [None]
  - Asthenia [None]
  - Abdominal pain [None]
  - Alopecia [None]
  - Fatigue [None]
  - Hypertrichosis [None]
